FAERS Safety Report 8957426 (Version 4)
Quarter: 2013Q2

REPORT INFORMATION
  Report Type: Report from Study
  Country: CA (occurrence: CA)
  Receive Date: 20121211
  Receipt Date: 20130516
  Transmission Date: 20140414
  Serious: Yes (Hospitalization, Other)
  Sender: FDA-Public Use
  Company Number: CA-ROCHE-1165044

PATIENT
  Age: 72 Year
  Sex: Male
  Weight: 104.3 kg

DRUGS (8)
  1. RITUXAN [Suspect]
     Indication: CHRONIC LYMPHOCYTIC LEUKAEMIA
     Route: 042
     Dates: start: 20121115
  2. ATORVASTATIN [Concomitant]
     Route: 065
  3. RAMIPRIL [Concomitant]
     Route: 065
  4. CITALOPRAM [Concomitant]
     Route: 065
  5. AMITRIPTYLINE [Concomitant]
     Route: 065
  6. TOPIRAMATE [Concomitant]
     Route: 065
  7. COLCHICINE [Concomitant]
     Route: 065
  8. ASA [Concomitant]
     Route: 065

REACTIONS (2)
  - Gallbladder disorder [Recovered/Resolved]
  - Pneumonia [Unknown]
